FAERS Safety Report 15418369 (Version 1)
Quarter: 2018Q3

REPORT INFORMATION
  Report Type: Spontaneous
  Country: SE (occurrence: SE)
  Receive Date: 20180924
  Receipt Date: 20180924
  Transmission Date: 20181010
  Serious: Yes (Life-Threatening, Hospitalization, Disabling)
  Sender: FDA-Public Use
  Company Number: SE-PFIZER INC-2018382268

PATIENT
  Age: 53 Year
  Sex: Male
  Weight: 130 kg

DRUGS (8)
  1. AMLODIPINE BESILATE [Suspect]
     Active Substance: AMLODIPINE BESYLATE
     Indication: CARDIAC FAILURE
     Dosage: 5 MG, DAILY
     Dates: end: 20180817
  2. ENTRESTO [Concomitant]
     Active Substance: SACUBITRIL\VALSARTAN
     Dates: end: 20180817
  3. ALVEDON [Concomitant]
     Active Substance: ACETAMINOPHEN
  4. SOMATROPIN. [Concomitant]
     Active Substance: SOMATROPIN
  5. EPLERENONE. [Concomitant]
     Active Substance: EPLERENONE
  6. TESTOSTERONE. [Concomitant]
     Active Substance: TESTOSTERONE
  7. OXYCODONE [Concomitant]
     Active Substance: OXYCODONE
  8. MIRTAZAPINE. [Concomitant]
     Active Substance: MIRTAZAPINE

REACTIONS (11)
  - Hyperhidrosis [Unknown]
  - Pain [Unknown]
  - Anxiety [Unknown]
  - Pigmentation disorder [Unknown]
  - Vasculitis [Unknown]
  - Asthenia [Unknown]
  - Joint swelling [Unknown]
  - Personality change [Unknown]
  - Suicidal ideation [Unknown]
  - Pruritus [Unknown]
  - Feeling abnormal [Unknown]

NARRATIVE: CASE EVENT DATE: 20170101
